FAERS Safety Report 23851217 (Version 1)
Quarter: 2024Q2

REPORT INFORMATION
  Report Type: Spontaneous
  Country: CA (occurrence: CA)
  Receive Date: 20240514
  Receipt Date: 20240514
  Transmission Date: 20240716
  Serious: Yes (Other)
  Sender: FDA-Public Use
  Company Number: CA-PFIZER INC-202400037164

PATIENT

DRUGS (4)
  1. INFLECTRA [Suspect]
     Active Substance: INFLIXIMAB-DYYB
     Indication: Rheumatoid arthritis
     Dosage: 375 MG, WEEKS 0,2,6 MAINTENANCE: EVERY 4 WEEKS FOR 12
     Route: 042
     Dates: start: 20231130
  2. INFLECTRA [Suspect]
     Active Substance: INFLIXIMAB-DYYB
     Dosage: 375 MG, WEEKS 0,2,6 MAINTENANCE: EVERY 4 WEEKS FOR 12
     Route: 042
     Dates: start: 20240111
  3. INFLECTRA [Suspect]
     Active Substance: INFLIXIMAB-DYYB
     Dosage: 375 MG, WEEKS 0,2,6 MAINTENANCE: EVERY 4 WEEKS FOR 12(370 MG, AFTER 7 WEEKS AND 6 DAYS)
     Route: 042
     Dates: start: 20240306
  4. INFLECTRA [Suspect]
     Active Substance: INFLIXIMAB-DYYB
     Dosage: 375 MG,WEEKS 0,2,6MAINTENANCE: EVERY 4 WEEKS FOR 12
     Route: 042
     Dates: start: 20240408

REACTIONS (3)
  - Pneumonia [Recovering/Resolving]
  - Wisdom teeth removal [Unknown]
  - Respiratory syncytial virus infection [Unknown]

NARRATIVE: CASE EVENT DATE: 20240208
